FAERS Safety Report 5013202-0 (Version None)
Quarter: 2006Q2

REPORT INFORMATION
  Report Type: 
  Country: None (occurrence: None)
  Receive Date: 20060530
  Receipt Date: 20060320
  Transmission Date: 20061013
  Serious: No
  Sender: FDA-Public Use
  Company Number: US-GLAXOSMITHKLINE-A0598223A

PATIENT
  Sex: Female

DRUGS (5)
  1. WELLBUTRIN XL [Suspect]
     Indication: DEPRESSION
     Dosage: 150MG TWICE PER DAY
     Route: 048
  2. DIOVAN HCT [Concomitant]
  3. TRILEPTAL [Concomitant]
  4. LITHIUM CARBONATE [Concomitant]
  5. LORAZEPAM [Concomitant]

REACTIONS (2)
  - FATIGUE [None]
  - TENSION [None]
